FAERS Safety Report 4417847-8 (Version None)
Quarter: 2004Q2

REPORT INFORMATION
  Report Type: 
  Country: None (occurrence: None)
  Receive Date: 20040621
  Receipt Date: 20040506
  Transmission Date: 20050107
  Serious: Yes (Other)
  Sender: FDA-Public Use
  Company Number: 2004031265

PATIENT
  Age: 51 Year
  Sex: Male
  Weight: 75 kg

DRUGS (5)
  1. VFEND [Suspect]
     Indication: ASPERGILLOSIS
     Dosage: 800 MG (400 MG, 2 IN 1 D)
     Dates: start: 20040101
  2. ACETAMINOPHEN [Concomitant]
  3. AMPHOTERICIN B [Concomitant]
  4. ANTIBIOTICS (ANTIBIOTICS) [Concomitant]
  5. ALL OTHER THERAPEUTIC PRODUCTS (ALL OTHER THERAPEUTIC PRODUCTS) [Concomitant]

REACTIONS (5)
  - HYPOAESTHESIA [None]
  - INTENTIONAL OVERDOSE [None]
  - MEDICATION ERROR [None]
  - NEUROPATHY PERIPHERAL [None]
  - PARAESTHESIA [None]
